FAERS Safety Report 17223350 (Version 1)
Quarter: 2020Q1

REPORT INFORMATION
  Report Type: Spontaneous
  Country: CN (occurrence: CN)
  Receive Date: 20200102
  Receipt Date: 20200102
  Transmission Date: 20200409
  Serious: Yes (Other)
  Sender: FDA-Public Use
  Company Number: CN-ROCHE-2506382

PATIENT
  Age: 32 Year
  Sex: Female
  Weight: 55 kg

DRUGS (5)
  1. OSELTAMIVIR [Suspect]
     Active Substance: OSELTAMIVIR
     Indication: INFLUENZA
     Route: 048
     Dates: start: 20191117, end: 20191122
  2. ROCEPHIN [Suspect]
     Active Substance: CEFTRIAXONE SODIUM
     Indication: PNEUMONIA
     Route: 041
     Dates: start: 20191115, end: 20191125
  3. GANCICLOVIR. [Concomitant]
     Active Substance: GANCICLOVIR
     Indication: ANTIVIRAL TREATMENT
     Route: 041
     Dates: start: 20191117, end: 20191122
  4. LANSOPRAZOLE. [Concomitant]
     Active Substance: LANSOPRAZOLE
     Route: 041
     Dates: start: 20191117, end: 20191122
  5. LEVOFLOXACIN LACTATE;SODIUM CHLORIDE [Concomitant]
     Indication: PNEUMONIA
     Route: 041
     Dates: start: 20191115, end: 20191119

REACTIONS (2)
  - Pyrexia [Recovered/Resolved]
  - Pseudocholelithiasis [Recovered/Resolved]

NARRATIVE: CASE EVENT DATE: 20191117
